FAERS Safety Report 7057253-3 (Version None)
Quarter: 2010Q4

REPORT INFORMATION
  Report Type: 
  Country: None (occurrence: None)
  Receive Date: 20101022
  Receipt Date: 20101019
  Transmission Date: 20110411
  Serious: Yes (Death)
  Sender: FDA-Public Use
  Company Number: FR-NOVOPROD-315845

PATIENT
  Age: 52 Year
  Sex: Male

DRUGS (11)
  1. VICTOZA [Suspect]
     Indication: TYPE 2 DIABETES MELLITUS
     Dosage: 1.2 MG, QD
     Route: 058
     Dates: start: 20100713, end: 20100731
  2. GLIBENESE                          /00145301/ [Suspect]
     Indication: PRODUCT USED FOR UNKNOWN INDICATION
     Dosage: 10 MG, QD
     Route: 048
  3. METFORMIN [Concomitant]
     Dosage: 2000 MG, QD
     Route: 048
     Dates: start: 20100713, end: 20100731
  4. BISOPROLOL [Concomitant]
  5. TAHOR [Concomitant]
  6. INEXIUM                            /01479302/ [Concomitant]
  7. PLAVIX [Concomitant]
  8. COAPROVEL [Concomitant]
  9. CYMBALTA [Concomitant]
  10. LYRICA [Concomitant]
  11. ZOPICLONE [Concomitant]

REACTIONS (1)
  - SUDDEN DEATH [None]
